FAERS Safety Report 7492496-6 (Version None)
Quarter: 2011Q2

REPORT INFORMATION
  Report Type: 
  Country: None (occurrence: None)
  Receive Date: 20110519
  Receipt Date: 20110511
  Transmission Date: 20111010
  Serious: Yes (Hospitalization, Other)
  Sender: FDA-Public Use
  Company Number: JP-PFIZER INC-2011094106

PATIENT
  Age: 68 Year
  Sex: Male
  Weight: 75 kg

DRUGS (9)
  1. PRORENAL [Concomitant]
     Dosage: 15 UG, UNK
  2. CELECOXIB [Suspect]
     Dosage: 100 MG, UNK
     Route: 048
  3. JUVELA [Concomitant]
     Dosage: 150 MG, UNK
  4. METFORMIN HCL [Suspect]
     Dosage: 250 MG, 2X/DAY (AFTER BREAKFAST/DINNER)
  5. AMARYL [Concomitant]
     Dosage: 1 MG, UNK
  6. MECOBALAMIN [Concomitant]
     Dosage: 150 UG, UNK
  7. OLMESARTAN MEDOXOMIL [Suspect]
     Dosage: 10 MG, 1X/DAY
     Route: 048
     Dates: start: 20100301
  8. OLMESARTAN MEDOXOMIL [Suspect]
     Dosage: 20 MG, 1X/DAY
     Route: 048
  9. TIZANIDINE HYDROCHLORIDE [Concomitant]
     Dosage: 3 MG, UNK

REACTIONS (7)
  - HYPOTENSION [None]
  - WEIGHT DECREASED [None]
  - METABOLIC ACIDOSIS [None]
  - RENAL IMPAIRMENT [None]
  - ACUTE PRERENAL FAILURE [None]
  - DEHYDRATION [None]
  - HYPERKALAEMIA [None]
